FAERS Safety Report 21491797 (Version 2)
Quarter: 2022Q4

REPORT INFORMATION
  Report Type: Other
  Country: ES (occurrence: ES)
  Receive Date: 20221021
  Receipt Date: 20221110
  Transmission Date: 20230113
  Serious: Yes (Other)
  Sender: FDA-Public Use
  Company Number: ES-CELLTRION INC.-2022ES016551

PATIENT

DRUGS (11)
  1. RITUXIMAB [Suspect]
     Active Substance: RITUXIMAB
     Indication: Mantle cell lymphoma stage IV
     Dosage: FIRST LINE IMMUNOCHEMOTHERAPY TREATMENT WITH FOUR CYCLES OF R-CHOP SCHEME AND TWO CYCLES OF R-DHAP S
  2. CARMUSTINE [Suspect]
     Active Substance: CARMUSTINE
     Indication: Mantle cell lymphoma stage IV
     Dosage: CONDITIONING BEAM REGIMEN
  3. CISPLATIN [Suspect]
     Active Substance: CISPLATIN
     Indication: Mantle cell lymphoma stage IV
     Dosage: FIRST LINE AND TWO CYCLES OF R-DHAP SCHEME
  4. CYCLOPHOSPHAMIDE [Suspect]
     Active Substance: CYCLOPHOSPHAMIDE
     Indication: Mantle cell lymphoma stage IV
     Dosage: FIRST LINE IMMUNOCHEMOTHERAPY TREATMENT WITH FOUR CYCLES OF R-CHOP SCHEME
  5. CYTARABINE [Suspect]
     Active Substance: CYTARABINE
     Indication: Mantle cell lymphoma stage IV
     Dosage: FIRST LINE AND TWO CYCLES OF R-DHAP SCHEME, CONDITIOINING BEAM REGIMEN
  6. DEXAMETHASONE [Suspect]
     Active Substance: DEXAMETHASONE
     Indication: Mantle cell lymphoma stage IV
     Dosage: FIRST LINE AND TWO CYCLES OF R-DHAP SCHEME
  7. DOXORUBICIN [Suspect]
     Active Substance: DOXORUBICIN
     Indication: Mantle cell lymphoma stage IV
     Dosage: FIRST LINE IMMUNOCHEMOTHERAPY TREATMENT WITH FOUR CYCLES OF R-CHOP SCHEME
  8. ETOPOSIDE [Suspect]
     Active Substance: ETOPOSIDE
     Indication: Mantle cell lymphoma stage IV
     Dosage: CONDITIONING BEAM REGIMEN
  9. MELPHALAN [Suspect]
     Active Substance: MELPHALAN
     Indication: Mantle cell lymphoma stage IV
     Dosage: CONDITIONING BEAM REGIMEN
  10. PREDNISONE [Suspect]
     Active Substance: PREDNISONE
     Indication: Mantle cell lymphoma stage IV
     Dosage: FIRST LINE IMMUNOCHEMOTHERAPY TREATMENT WITH FOUR CYCLES OF R-CHOP SCHEME
  11. VINCRISTINE SULFATE [Suspect]
     Active Substance: VINCRISTINE SULFATE
     Indication: Mantle cell lymphoma stage IV
     Dosage: FIRST LINE IMMUNOCHEMOTHERAPY TREATMENT WITH FOUR CYCLES OF R-CHOP SCHEME

REACTIONS (5)
  - Mantle cell lymphoma [Unknown]
  - Symptom recurrence [Unknown]
  - Recurrent cancer [Unknown]
  - Thrombocytopenia [Unknown]
  - Off label use [Unknown]

NARRATIVE: CASE EVENT DATE: 20200101
